FAERS Safety Report 8884823 (Version 6)
Quarter: 2014Q2

REPORT INFORMATION
  Report Type: Report from Study
  Country: JP (occurrence: JP)
  Receive Date: 20121102
  Receipt Date: 20140613
  Transmission Date: 20141212
  Serious: Yes (Hospitalization, Other)
  Sender: FDA-Public Use
  Company Number: JP-AMGEN-JPNSP2011034884

PATIENT
  Age: 82 Year
  Sex: Male
  Weight: 45 kg

DRUGS (28)
  1. ROMIPLOSTIM - KHK [Suspect]
     Indication: IMMUNE THROMBOCYTOPENIC PURPURA
     Dosage: 1.9 MUG/KG, QD
     Route: 058
     Dates: start: 20110615
  2. ADONA [Concomitant]
     Indication: PROPHYLAXIS
     Dosage: UNK
     Route: 048
  3. TRANSAMIN [Concomitant]
     Indication: PROPHYLAXIS
     Dosage: UNK
     Route: 048
  4. MAGNESIUM OXIDE [Concomitant]
     Indication: CONSTIPATION
     Dosage: UNK
     Route: 048
  5. METHYCOBAL [Concomitant]
     Indication: SPINAL COMPRESSION FRACTURE
     Dosage: UNK
     Route: 048
  6. CALONAL [Concomitant]
     Indication: SPINAL COMPRESSION FRACTURE
     Dosage: UNK
     Route: 048
  7. MUCOSTA [Concomitant]
     Indication: PROPHYLAXIS
     Dosage: UNK
     Route: 048
  8. PAXIL [Concomitant]
     Indication: SPINAL COMPRESSION FRACTURE
     Dosage: UNK
     Route: 048
  9. FENAZOL [Concomitant]
     Indication: ECZEMA
     Dosage: UNK
     Route: 061
  10. BONALON [Concomitant]
     Indication: OSTEOPOROSIS
     Dosage: 5 MG, UNK
     Route: 048
  11. ASPARA-CA [Concomitant]
     Indication: OSTEOPOROSIS
     Dosage: UNK
     Route: 048
  12. ROCALTROL [Concomitant]
     Indication: OSTEOPOROSIS
     Dosage: UNK
     Route: 048
  13. SELTOUCH [Concomitant]
     Indication: SPINAL COMPRESSION FRACTURE
     Dosage: UNK
     Route: 062
  14. STARSIS [Concomitant]
     Indication: DIABETES MELLITUS
     Dosage: UNK
     Route: 048
  15. ACTOS [Concomitant]
     Indication: DIABETES MELLITUS
     Dosage: UNK
     Route: 048
  16. UBRETID [Concomitant]
     Indication: NEUROGENIC BLADDER
     Dosage: UNK
     Route: 048
  17. ADOFEED [Concomitant]
     Indication: SPINAL COMPRESSION FRACTURE
     Dosage: UNK
     Route: 062
  18. TOFRANIL [Concomitant]
     Indication: NEUROGENIC BLADDER
     Dosage: UNK
     Route: 048
  19. JANUVIA [Concomitant]
     Indication: DIABETES MELLITUS
     Dosage: UNK
     Route: 048
  20. LAC-B [Concomitant]
     Indication: CONSTIPATION
     Dosage: UNK
     Route: 048
  21. CYMBALTA [Concomitant]
     Indication: NEUROGENIC BLADDER
     Dosage: UNK
     Route: 048
  22. FLOMOX [Concomitant]
     Indication: PROPHYLAXIS
     Dosage: UNK
     Route: 048
  23. AMARYL [Concomitant]
     Indication: DIABETES MELLITUS
     Dosage: UNK
     Route: 048
  24. ALFAROL [Concomitant]
     Indication: OSTEOPOROSIS
     Dosage: UNK
     Route: 048
  25. MS ONSHIPPU [Concomitant]
     Indication: SPINAL COMPRESSION FRACTURE
     Dosage: UNK
     Route: 062
  26. LAXOBERON [Concomitant]
     Indication: CONSTIPATION
     Dosage: UNK
     Route: 048
  27. SERMION [Concomitant]
     Indication: LACUNAR INFARCTION
     Dosage: UNK
     Route: 048
  28. ROZEREM [Concomitant]
     Indication: PROPHYLAXIS
     Dosage: UNK
     Route: 048

REACTIONS (12)
  - Mouth haemorrhage [Recovered/Resolved]
  - Platelet count decreased [Recovered/Resolved]
  - Vascular dementia [Not Recovered/Not Resolved]
  - Epistaxis [Recovered/Resolved]
  - Diabetes mellitus [Not Recovered/Not Resolved]
  - Overdose [Unknown]
  - Eyelid oedema [Recovered/Resolved]
  - Stomatitis [Recovered/Resolved]
  - Abdominal discomfort [Recovered/Resolved]
  - Rhinitis allergic [Not Recovered/Not Resolved]
  - Diarrhoea [Recovered/Resolved]
  - Upper respiratory tract inflammation [Recovered/Resolved]
